FAERS Safety Report 8966864 (Version 3)
Quarter: 2013Q2

REPORT INFORMATION
  Report Type: Spontaneous
  Country: US (occurrence: US)
  Receive Date: 20121214
  Receipt Date: 20130627
  Transmission Date: 20140414
  Serious: Yes (Hospitalization)
  Sender: FDA-Public Use
  Company Number: CHPA2012US025076

PATIENT
  Sex: Female

DRUGS (2)
  1. VOLTAREN GEL [Suspect]
     Dosage: UNK, UNK
     Route: 061
  2. VOLTAREN GEL [Suspect]
     Dosage: UNK
     Route: 061

REACTIONS (4)
  - Gastritis [Unknown]
  - Vomiting [Unknown]
  - Drug ineffective [Unknown]
  - Drug administered at inappropriate site [Unknown]
